FAERS Safety Report 5940419-0 (Version None)
Quarter: 2008Q4

REPORT INFORMATION
  Report Type: 
  Country: None (occurrence: None)
  Receive Date: 20081104
  Receipt Date: 20081022
  Transmission Date: 20090506
  Serious: Yes (Hospitalization)
  Sender: FDA-Public Use
  Company Number: AT-GENENTECH-270605

PATIENT
  Sex: Female

DRUGS (3)
  1. BEVACIZUMAB [Suspect]
     Indication: COLORECTAL CANCER METASTATIC
     Dosage: 360 MG, Q2W
     Route: 042
     Dates: start: 20080728
  2. CAPECITABINE [Concomitant]
     Indication: COLORECTAL CANCER METASTATIC
     Dosage: 2000 MG, UNK
     Route: 048
     Dates: start: 20080728
  3. OXALIPLATIN [Concomitant]
     Indication: COLORECTAL CANCER METASTATIC
     Dosage: 174 MG, Q2W
     Route: 042
     Dates: start: 20080728

REACTIONS (1)
  - ATRIAL FIBRILLATION [None]
